FAERS Safety Report 7799999-5 (Version None)
Quarter: 2011Q4

REPORT INFORMATION
  Report Type: 
  Country: None (occurrence: None)
  Receive Date: 20111006
  Receipt Date: 20111002
  Transmission Date: 20120403
  Serious: Yes (Hospitalization)
  Sender: FDA-Public Use
  Company Number: IL-ROCHE-798011

PATIENT
  Age: 43 Year
  Sex: Male
  Weight: 93.4 kg

DRUGS (2)
  1. VEMURAFENIB [Suspect]
     Indication: METASTATIC MALIGNANT MELANOMA
     Dosage: DOSE REDUCED
     Route: 048
     Dates: start: 20110721, end: 20110818
  2. VEMURAFENIB [Suspect]
     Route: 048

REACTIONS (1)
  - HYPERURICAEMIA [None]
